FAERS Safety Report 17620933 (Version 1)
Quarter: 2020Q2

REPORT INFORMATION
  Report Type: Other
  Country: CA (occurrence: CA)
  Receive Date: 20200403
  Receipt Date: 20200403
  Transmission Date: 20200713
  Serious: Yes (Hospitalization)
  Sender: FDA-Public Use
  Company Number: CA-GLENMARK PHARMACEUTICALS-2020GMK047001

PATIENT

DRUGS (1)
  1. GABAPENTIN. [Suspect]
     Active Substance: GABAPENTIN
     Indication: HYPOMANIA
     Dosage: 500 MILLIGRAM, OD (1 EVERY 1 DAYS)
     Route: 065

REACTIONS (4)
  - Off label use [Unknown]
  - Drug withdrawal syndrome [Recovered/Resolved]
  - Catatonia [Recovered/Resolved]
  - Product use in unapproved indication [Unknown]
